FAERS Safety Report 21564725 (Version 1)
Quarter: 2022Q4

REPORT INFORMATION
  Report Type: Spontaneous
  Country: CZ (occurrence: CZ)
  Receive Date: 20221108
  Receipt Date: 20221108
  Transmission Date: 20230112
  Serious: Yes (Other)
  Sender: FDA-Public Use
  Company Number: CZ-SUN PHARMACEUTICAL INDUSTRIES LTD-2022RR-362662

PATIENT
  Age: 72 Year
  Sex: Male

DRUGS (2)
  1. GEMCITABINE [Suspect]
     Active Substance: GEMCITABINE
     Indication: Transitional cell carcinoma
     Dosage: UNK, 6 CYCLES
     Route: 065
     Dates: start: 202107, end: 202110
  2. CARBOPLATIN [Suspect]
     Active Substance: CARBOPLATIN
     Indication: Transitional cell carcinoma
     Dosage: UNK, 6 CYCLES
     Route: 065
     Dates: start: 202107, end: 202110

REACTIONS (1)
  - Therapeutic product effect incomplete [Unknown]

NARRATIVE: CASE EVENT DATE: 20220101
